FAERS Safety Report 13900158 (Version 1)
Quarter: 2017Q3

REPORT INFORMATION
  Report Type: Other
  Country: DE (occurrence: DE)
  Receive Date: 20170824
  Receipt Date: 20170824
  Transmission Date: 20171127
  Serious: Yes (Life-Threatening, Hospitalization, Other)
  Sender: FDA-Public Use
  Company Number: DE-VELOXIS PHARMACEUTICALS-2025042

PATIENT
  Age: 58 Year
  Sex: Female

DRUGS (4)
  1. MYCOPHENOLATE MOFETIL. [Suspect]
     Active Substance: MYCOPHENOLATE MOFETIL
     Route: 065
  2. PREDNISONE. [Suspect]
     Active Substance: PREDNISONE
     Route: 065
  3. ENVARSUS XR [Suspect]
     Active Substance: TACROLIMUS
     Indication: IMMUNOSUPPRESSION
     Route: 065
  4. FLUCONAZOLE. [Suspect]
     Active Substance: FLUCONAZOLE
     Route: 065

REACTIONS (6)
  - Shock haemorrhagic [Recovering/Resolving]
  - Aspiration [Recovering/Resolving]
  - Candida infection [Recovering/Resolving]
  - Vascular pseudoaneurysm [Recovering/Resolving]
  - Haemorrhage [Recovering/Resolving]
  - Multiple organ dysfunction syndrome [Recovering/Resolving]
